FAERS Safety Report 9225367 (Version 1)
Quarter: 2013Q2

REPORT INFORMATION
  Report Type: Spontaneous
  Country: DZ (occurrence: DZ)
  Receive Date: 20130411
  Receipt Date: 20130411
  Transmission Date: 20140414
  Serious: Yes (Other)
  Sender: FDA-Public Use
  Company Number: DZ-ROCHE-1210109

PATIENT
  Age: 45 Year
  Sex: Female
  Weight: 69 kg

DRUGS (2)
  1. ACTEMRA [Suspect]
     Indication: RHEUMATOID ARTHRITIS
     Route: 042
     Dates: start: 201208
  2. METHOTREXATE [Suspect]
     Indication: RHEUMATOID ARTHRITIS
     Route: 048

REACTIONS (4)
  - Weight increased [Not Recovered/Not Resolved]
  - Increased appetite [Unknown]
  - Hunger [Unknown]
  - High density lipoprotein decreased [Not Recovered/Not Resolved]
